FAERS Safety Report 5426142-X (Version None)
Quarter: 2007Q3

REPORT INFORMATION
  Report Type: 
  Country: None (occurrence: None)
  Receive Date: 20070827
  Receipt Date: 20070816
  Transmission Date: 20080115
  Serious: Yes (Other)
  Sender: FDA-Public Use
  Company Number: GB-ELI_LILLY_AND_COMPANY-GB200702002684

PATIENT
  Age: 35 Year
  Sex: Female

DRUGS (3)
  1. ZYPREXA [Suspect]
     Indication: BIPOLAR DISORDER
     Dosage: 10 MG, UNK
  2. ZYPREXA [Suspect]
     Dosage: 7.5 MG, UNK
  3. ZYPREXA [Suspect]
     Dosage: 12.5 MG, UNK

REACTIONS (3)
  - BLOOD PROLACTIN INCREASED [None]
  - LACTATION DISORDER [None]
  - PITUITARY CYST [None]
